FAERS Safety Report 7964881-7 (Version None)
Quarter: 2011Q4

REPORT INFORMATION
  Report Type: 
  Country: None (occurrence: None)
  Receive Date: 20111208
  Receipt Date: 20111208
  Transmission Date: 20120403
  Serious: Yes (Hospitalization, Other)
  Sender: FDA-Public Use
  Company Number: None

PATIENT
  Sex: Male
  Weight: 123.3 kg

DRUGS (1)
  1. BYETTA [Suspect]

REACTIONS (3)
  - NECROTISING FASCIITIS [None]
  - MULTI-ORGAN FAILURE [None]
  - SEPSIS [None]
